FAERS Safety Report 22969275 (Version 4)
Quarter: 2023Q4

REPORT INFORMATION
  Report Type: Other
  Country: NL (occurrence: NL)
  Receive Date: 20230922
  Receipt Date: 20231105
  Transmission Date: 20240110
  Serious: Yes (Disabling)
  Sender: FDA-Public Use
  Company Number: NL-GLENMARK PHARMACEUTICALS-2023GMK085243

PATIENT

DRUGS (3)
  1. MOMETASONE FUROATE [Interacting]
     Active Substance: MOMETASONE FUROATE
     Indication: Ear disorder
     Dosage: UNK
     Route: 065
     Dates: start: 20220101
  2. LEVOFLOXACIN [Interacting]
     Active Substance: LEVOFLOXACIN
     Indication: Legionella infection
     Dosage: 1 DOSAGE FORM, BID (2 X PER DAG 1 STUK 10 DAGEN)
     Route: 065
     Dates: start: 20220613
  3. LOSARTAN [Concomitant]
     Active Substance: LOSARTAN
     Indication: Hypertension
     Dosage: 50 MILLIGRAM
     Route: 065

REACTIONS (11)
  - Neuralgia [Not Recovered/Not Resolved]
  - Muscular weakness [Not Recovered/Not Resolved]
  - Myalgia [Not Recovered/Not Resolved]
  - Parosmia [Not Recovered/Not Resolved]
  - Insomnia [Not Recovered/Not Resolved]
  - Dysgeusia [Recovered/Resolved]
  - Tendon rupture [Recovered/Resolved]
  - Somnolence [Unknown]
  - Drug interaction [Unknown]
  - Paraesthesia oral [Not Recovered/Not Resolved]
  - Paraesthesia [Not Recovered/Not Resolved]
